FAERS Safety Report 8072713-4 (Version None)
Quarter: 2012Q1

REPORT INFORMATION
  Report Type: 
  Country: None (occurrence: None)
  Receive Date: 20120126
  Receipt Date: 20120123
  Transmission Date: 20120608
  Serious: No
  Sender: FDA-Public Use
  Company Number: US-PFIZER INC-2012003418

PATIENT
  Sex: Female
  Weight: 105 kg

DRUGS (6)
  1. ALBUTEROL [Concomitant]
     Dosage: UNK
  2. IMITREX [Concomitant]
     Dosage: UNK
  3. LYRICA [Suspect]
     Indication: FIBROMYALGIA
     Dosage: 75 MG, 2X/DAY
     Route: 048
     Dates: start: 20111213
  4. SINGULAIR [Concomitant]
     Dosage: UNK
  5. SYMBICORT [Concomitant]
     Dosage: UNK
  6. NEXIUM [Concomitant]
     Dosage: UNK

REACTIONS (1)
  - WEIGHT INCREASED [None]
